FAERS Safety Report 6969551-X (Version None)
Quarter: 2010Q3

REPORT INFORMATION
  Report Type: 
  Country: None (occurrence: None)
  Receive Date: 20100907
  Receipt Date: 20100907
  Transmission Date: 20110219
  Serious: No
  Sender: FDA-Public Use
  Company Number: None

PATIENT
  Age: 28 Year
  Sex: Female
  Weight: 61.2356 kg

DRUGS (2)
  1. BUPROPION HCL [Suspect]
     Indication: DEPRESSION
     Dosage: 300 MG DAILY PO APPROXIMATE DATES; 1 MO.
     Route: 048
     Dates: start: 20100608, end: 20100708
  2. BUPROPION HCL [Suspect]
     Indication: DEPRESSION
     Dosage: 300 MG DAILY PO APPROXIMATE DATES; 1 MO.
     Route: 048
     Dates: start: 20100727, end: 20100904

REACTIONS (3)
  - ALOPECIA [None]
  - HEADACHE [None]
  - UNEVALUABLE EVENT [None]
